FAERS Safety Report 6734741-8 (Version None)
Quarter: 2010Q2

REPORT INFORMATION
  Report Type: 
  Country: None (occurrence: None)
  Receive Date: 20100519
  Receipt Date: 20100519
  Transmission Date: 20101027
  Serious: Yes (Death, Life-Threatening, Hospitalization, Disabling, Other)
  Sender: FDA-Public Use
  Company Number: None

PATIENT
  Sex: Male
  Weight: 77.1115 kg

DRUGS (2)
  1. REGLAN [Suspect]
     Indication: CEREBROVASCULAR ACCIDENT
     Dosage: 10, 11 MONTH 98
     Dates: start: 19980101
  2. HEPARIN [Suspect]
     Dosage: 1000

REACTIONS (4)
  - ASTHENIA [None]
  - CEREBROVASCULAR ACCIDENT [None]
  - DYSKINESIA [None]
  - UNEVALUABLE EVENT [None]
